FAERS Safety Report 24330750 (Version 1)
Quarter: 2024Q3

REPORT INFORMATION
  Report Type: Spontaneous
  Country: FR (occurrence: FR)
  Receive Date: 20240918
  Receipt Date: 20240918
  Transmission Date: 20241016
  Serious: Yes (Other)
  Sender: AUROBINDO
  Company Number: FR-AUROBINDO-AUR-APL-2017-48418

PATIENT
  Age: 36 Year
  Sex: Male
  Weight: 82.4 kg

DRUGS (5)
  1. OXALIPLATIN [Suspect]
     Active Substance: OXALIPLATIN
     Indication: Colorectal cancer metastatic
     Dosage: 175 MILLIGRAM
     Route: 065
     Dates: start: 20170413
  2. IRINOTECAN [Suspect]
     Active Substance: IRINOTECAN
     Indication: Colorectal cancer metastatic
     Dosage: 360 MILLIGRAM
     Route: 065
     Dates: start: 20170413
  3. FLUOROURACIL [Suspect]
     Active Substance: FLUOROURACIL
     Indication: Colorectal cancer metastatic
     Dosage: 4800 MILLIGRAM
     Route: 041
     Dates: start: 20170413
  4. FLUOROURACIL [Suspect]
     Active Substance: FLUOROURACIL
     Dosage: 820 MILLIGRAM (CONTINUOS DOSING)
     Route: 040
     Dates: start: 20170413
  5. AVASTIN [Suspect]
     Active Substance: BEVACIZUMAB
     Indication: Colorectal cancer metastatic
     Dosage: 420 MILLIGRAM
     Route: 065
     Dates: start: 20170413

REACTIONS (3)
  - Rectal haemorrhage [Recovered/Resolved]
  - Decreased appetite [Recovered/Resolved]
  - Off label use [Unknown]

NARRATIVE: CASE EVENT DATE: 20170413
